FAERS Safety Report 9741332 (Version 1)
Quarter: 2013Q4

REPORT INFORMATION
  Report Type: Report from Study
  Country: US (occurrence: US)
  Receive Date: 20131209
  Receipt Date: 20131209
  Transmission Date: 20140711
  Serious: Yes (Other)
  Sender: FDA-Public Use
  Company Number: US-PFIZER INC-2013346447

PATIENT
  Age: 38 Year
  Sex: Female

DRUGS (7)
  1. INOTUZUMAB OZOGAMICIN [Suspect]
     Dosage: 1.8 MG/M2, OVER 1 HOUR ON DAY 3
     Route: 042
     Dates: start: 201311
  2. DEXAMETHASONE SODIUM PHOSPHATE [Suspect]
     Dosage: 20 MG, DAILY FOR 4 DAYS ON DAYS 1 AND DAYS 11-14
     Route: 042
  3. MESNA [Suspect]
     Dosage: 300 MG/M2, DAILY OVER 24 HOURS FOR 3 DAYS ON DAYS 1-3
     Route: 042
  4. CYCLOPHOSPHAMIDE [Suspect]
     Dosage: 150 MG/M2, OVER 3 HOURS (ILLEGIBLE) DAY ON DAYS 1-3
     Route: 042
  5. VINCRISTINE [Suspect]
     Dosage: 2 MG, DAY 1 AND DAY 8
     Route: 042
  6. RITUXIMAB [Suspect]
     Dosage: 375 MG/M2, ON DAY 2 AND DAY 8 (CYCLES ILLEGIBLE AND 3 ONLY)
     Route: 042
  7. PEGFILGRASTIM [Suspect]
     Dosage: 6 MG, ON DAY 4 UNTIL
     Route: 058

REACTIONS (1)
  - Febrile neutropenia [Recovered/Resolved]
